FAERS Safety Report 5135086-2 (Version None)
Quarter: 2006Q4

REPORT INFORMATION
  Report Type: 
  Country: None (occurrence: None)
  Receive Date: 20060831
  Receipt Date: 20060522
  Transmission Date: 20070319
  Serious: No
  Sender: FDA-Public Use
  Company Number: 2006-BP-04497BP

PATIENT
  Age: 71 Year
  Sex: Male

DRUGS (10)
  1. SPIRIVA [Suspect]
     Indication: CHRONIC OBSTRUCTIVE PULMONARY DISEASE
     Dosage: 18 MCG (18 MCG,1 IN 1 D),IH
     Route: 055
  2. SPIRIVA [Suspect]
  3. GLYPIZIDE XL (GLIPIZIDE) [Concomitant]
  4. SINGULAIR [Concomitant]
  5. LISINOPRIL [Concomitant]
  6. TICLID [Concomitant]
  7. DILTIAZEM [Concomitant]
  8. ISMO [Concomitant]
  9. AVAPRO [Concomitant]
  10. XOPENEX [Concomitant]

REACTIONS (1)
  - DRUG INEFFECTIVE [None]
